FAERS Safety Report 12655124 (Version 4)
Quarter: 2016Q3

REPORT INFORMATION
  Report Type: Spontaneous
  Country: US (occurrence: US)
  Receive Date: 20160816
  Receipt Date: 20160927
  Transmission Date: 20161109
  Serious: Yes (Hospitalization)
  Sender: FDA-Public Use
  Company Number: US-009507513-1608USA006519

PATIENT
  Age: 25 Year
  Sex: Female
  Weight: 44.9 kg

DRUGS (1)
  1. NEXPLANON [Suspect]
     Active Substance: ETONOGESTREL
     Indication: CONTRACEPTION
     Dosage: 1 ROD/3 YEARS
     Route: 059
     Dates: start: 20160327

REACTIONS (9)
  - Device difficult to use [Not Recovered/Not Resolved]
  - Menorrhagia [Not Recovered/Not Resolved]
  - Ovarian cyst [Not Recovered/Not Resolved]
  - Complication of device removal [Not Recovered/Not Resolved]
  - Headache [Not Recovered/Not Resolved]
  - Device deployment issue [Not Recovered/Not Resolved]
  - Nausea [Not Recovered/Not Resolved]
  - Migration of implanted drug [Not Recovered/Not Resolved]
  - Complication of device insertion [Not Recovered/Not Resolved]

NARRATIVE: CASE EVENT DATE: 2016
